FAERS Safety Report 10328104 (Version 1)
Quarter: 2014Q3

REPORT INFORMATION
  Report Type: Spontaneous
  Country: US (occurrence: None)
  Receive Date: 20140716
  Receipt Date: 20140716
  Transmission Date: 20150326
  Serious: Yes (Hospitalization)
  Sender: FDA-Public Use
  Company Number: None

PATIENT
  Age: 85 Year
  Sex: Male

DRUGS (1)
  1. XTANDI [Suspect]
     Active Substance: ENZALUTAMIDE
     Indication: PROSTATE CANCER
     Route: 048
     Dates: start: 20140617

REACTIONS (6)
  - Asthenia [None]
  - Activities of daily living impaired [None]
  - Platelet count decreased [None]
  - Gingival bleeding [None]
  - Fatigue [None]
  - Haemorrhage [None]

NARRATIVE: CASE EVENT DATE: 20140710
